FAERS Safety Report 5386884-1 (Version None)
Quarter: 2007Q3

REPORT INFORMATION
  Report Type: 
  Country: None (occurrence: None)
  Receive Date: 20070713
  Receipt Date: 20070702
  Transmission Date: 20080115
  Serious: Yes (Hospitalization, Other)
  Sender: FDA-Public Use
  Company Number: JP-PFIZER INC-2007044213

PATIENT
  Sex: Female

DRUGS (5)
  1. SOLU-MEDROL [Suspect]
     Indication: DRUG ERUPTION
     Route: 042
     Dates: start: 20070525, end: 20070527
  2. BANAN [Suspect]
     Route: 048
  3. LEVOFLOXACIN [Concomitant]
     Route: 048
  4. ALL OTHER THERAPEUTIC PRODUCTS [Concomitant]
     Route: 048
  5. LOXONIN [Concomitant]
     Indication: DYSMENORRHOEA
     Route: 048

REACTIONS (7)
  - AUTONOMIC NERVOUS SYSTEM IMBALANCE [None]
  - DEHYDRATION [None]
  - DRUG ERUPTION [None]
  - DYSHIDROSIS [None]
  - INSOMNIA [None]
  - MENSTRUAL DISORDER [None]
  - PIGMENTATION DISORDER [None]
